FAERS Safety Report 14592900 (Version 3)
Quarter: 2018Q2

REPORT INFORMATION
  Report Type: Spontaneous
  Country: JP (occurrence: JP)
  Receive Date: 20180302
  Receipt Date: 20180416
  Transmission Date: 20180711
  Serious: Yes (Other)
  Sender: FDA-Public Use
  Company Number: JP-UCBSA-2018007974

PATIENT
  Age: 74 Year
  Sex: Female

DRUGS (3)
  1. VIMPAT [Suspect]
     Active Substance: LACOSAMIDE
     Indication: EPILEPSY
     Dosage: 50 MG, 2X/DAY (BID)
     Route: 048
     Dates: start: 20170911, end: 20171001
  2. VIMPAT [Suspect]
     Active Substance: LACOSAMIDE
     Dosage: 200 MG DAILY
     Route: 048
     Dates: start: 20171002, end: 20171224
  3. VIMPAT [Suspect]
     Active Substance: LACOSAMIDE
     Dosage: 300 MG DAILY
     Route: 048
     Dates: start: 20171225, end: 20180128

REACTIONS (1)
  - Familial periodic paralysis [Unknown]
